FAERS Safety Report 13546820 (Version 1)
Quarter: 2017Q2

REPORT INFORMATION
  Report Type: Spontaneous
  Country: US (occurrence: US)
  Receive Date: 20170515
  Receipt Date: 20170515
  Transmission Date: 20170830
  Serious: Yes (Death, Life-Threatening, Hospitalization)
  Sender: FDA-Public Use
  Company Number: US-UNITED THERAPEUTICS-UNT-2017-006814

PATIENT
  Sex: Female

DRUGS (1)
  1. REMODULIN [Suspect]
     Active Substance: TREPROSTINIL
     Indication: PULMONARY ARTERIAL HYPERTENSION
     Dosage: 0.15 ?G/KG, CONTINUING
     Route: 041
     Dates: start: 20130629, end: 20170507

REACTIONS (2)
  - Pulmonary arterial hypertension [Fatal]
  - Endotracheal intubation [Unknown]

NARRATIVE: CASE EVENT DATE: 20170506
